FAERS Safety Report 8647804 (Version 2)
Quarter: 2014Q2

REPORT INFORMATION
  Report Type: Spontaneous
  Country: CH (occurrence: None)
  Receive Date: 20120621
  Receipt Date: 20140612
  Transmission Date: 20141212
  Serious: Yes (Hospitalization, Other)
  Sender: FDA-Public Use
  Company Number: 20120352

PATIENT
  Age: 26 Year
  Sex: Female

DRUGS (2)
  1. VENOFER [Suspect]
     Indication: ANAEMIA
     Dosage: 20 MG/ML; UNSPECIFIED DILUTION INTRAVENOUS DRIP
     Route: 041
     Dates: start: 20120328, end: 20120404
  2. FERINJECT [Suspect]
     Indication: PRODUCT USED FOR UNKNOWN INDICATION

REACTIONS (5)
  - Abdominal pain [None]
  - Headache [None]
  - Pruritus [None]
  - Fatigue [None]
  - Dysgeusia [None]
